FAERS Safety Report 9289225 (Version 1)
Quarter: 2013Q2

REPORT INFORMATION
  Report Type: Spontaneous
  Country: US (occurrence: US)
  Receive Date: 20130514
  Receipt Date: 20130514
  Transmission Date: 20140414
  Serious: No
  Sender: FDA-Public Use
  Company Number: US-OPTIMER PHARMACEUTICALS, INC.-20120036

PATIENT
  Age: 79 Year
  Sex: Male
  Weight: 84.17 kg

DRUGS (9)
  1. DIFICID [Suspect]
     Indication: CLOSTRIDIAL INFECTION
     Dosage: 200 MG, BID
     Route: 048
     Dates: start: 20120215, end: 20120224
  2. DIFICID [Suspect]
     Indication: DIARRHOEA
     Dosage: 200 MG, BID
     Route: 048
     Dates: start: 20120319
  3. ALLOPURINOL [Concomitant]
     Indication: GOUT
     Dosage: 100 MG, QD
     Route: 048
  4. HYDRALAZINE [Concomitant]
     Indication: HYPERTENSION
     Dosage: 50 MG, Q 8 H
     Route: 048
  5. LOPRESSOR [Concomitant]
     Indication: HYPERTENSION
     Dosage: 50 MG, BID
     Route: 048
  6. POTASSIUM [Concomitant]
     Indication: SUPPLEMENTATION THERAPY
     Dosage: 20 MEQ, QD
     Route: 048
  7. PRAVASTATIN [Concomitant]
     Dosage: 20 MG, BID
     Route: 048
  8. REMERON [Concomitant]
     Indication: DEPRESSION
     Dosage: 7.5 MG, QHS
  9. XARELTO [Concomitant]
     Dosage: UNK
     Dates: start: 20120117

REACTIONS (4)
  - Clostridium difficile infection [Unknown]
  - Disease recurrence [Unknown]
  - Diarrhoea [Recovering/Resolving]
  - Treatment failure [Unknown]
